FAERS Safety Report 7217560-8 (Version None)
Quarter: 2011Q1

REPORT INFORMATION
  Report Type: 
  Country: None (occurrence: None)
  Receive Date: 20110110
  Receipt Date: 20110104
  Transmission Date: 20110831
  Serious: Yes (Death, Hospitalization)
  Sender: FDA-Public Use
  Company Number: CH-NAPPMUNDI-DEU-2010-0006827

PATIENT
  Age: 66 Year
  Sex: Male

DRUGS (4)
  1. EFFEXOR XR [Suspect]
     Indication: PRODUCT USED FOR UNKNOWN INDICATION
     Dosage: 75 MG, DAILY
     Route: 048
     Dates: start: 20100929
  2. OXYCODONE HYDROCHLORIDE [Suspect]
     Indication: PRODUCT USED FOR UNKNOWN INDICATION
     Dosage: 10 MG, BID
     Route: 048
     Dates: start: 20100929
  3. LYRICA [Suspect]
     Dosage: 150 MG, DAILY
     Route: 048
     Dates: start: 20100929
  4. AMITRIPTYLINE HCL [Suspect]
     Indication: PRODUCT USED FOR UNKNOWN INDICATION
     Dosage: 25 MG, DAILY
     Route: 048
     Dates: start: 20100929

REACTIONS (8)
  - CONFUSIONAL STATE [None]
  - RENAL FAILURE ACUTE [None]
  - HALLUCINATION [None]
  - ILEUS [None]
  - MYOCLONUS [None]
  - MULTI-ORGAN FAILURE [None]
  - SOMNOLENCE [None]
  - CONSTIPATION [None]
